FAERS Safety Report 19096443 (Version 2)
Quarter: 2021Q2

REPORT INFORMATION
  Report Type: Spontaneous
  Country: FR (occurrence: FR)
  Receive Date: 20210406
  Receipt Date: 20210517
  Transmission Date: 20210717
  Serious: Yes (Other)
  Sender: FDA-Public Use
  Company Number: FR-SA-2021SA113193

PATIENT
  Age: 47 Year
  Sex: Male

DRUGS (1)
  1. DUPIXENT [Suspect]
     Active Substance: DUPILUMAB
     Indication: ECZEMA
     Dosage: 1 DF, Q15D
     Route: 058
     Dates: start: 20191121, end: 202002

REACTIONS (1)
  - Parotid abscess [Recovered/Resolved]

NARRATIVE: CASE EVENT DATE: 202003
